FAERS Safety Report 10058012 (Version 1)
Quarter: 2014Q2

REPORT INFORMATION
  Report Type: Spontaneous
  Country: US (occurrence: None)
  Receive Date: 20140403
  Receipt Date: 20140403
  Transmission Date: 20141212
  Serious: Yes (Other)
  Sender: FDA-Public Use
  Company Number: None

PATIENT
  Age: 68 Year
  Sex: Male
  Weight: 86.18 kg

DRUGS (2)
  1. MOVIPREP SOLUTION [Suspect]
     Indication: COLONOSCOPY
     Dosage: MIX 2 PKTS WITH 32 OZ WATER, TWICE DAILY, TAKEN BY MOUTH
     Route: 048
     Dates: start: 20140331, end: 20140331
  2. MOVIPREP SOLUTION [Suspect]
     Indication: BOWEL PREPARATION
     Dosage: MIX 2 PKTS WITH 32 OZ WATER, TWICE DAILY, TAKEN BY MOUTH
     Route: 048
     Dates: start: 20140331, end: 20140331

REACTIONS (1)
  - Sinus congestion [None]
